FAERS Safety Report 4332607-4 (Version None)
Quarter: 2004Q1

REPORT INFORMATION
  Report Type: 
  Country: None (occurrence: None)
  Receive Date: 20040330
  Receipt Date: 20021127
  Transmission Date: 20041129
  Serious: Yes (Death, Life-Threatening, Other)
  Sender: FDA-Public Use
  Company Number: 2002IC000330

PATIENT
  Age: 82 Year
  Sex: Male

DRUGS (4)
  1. FLUOROURACIL [Suspect]
     Indication: COLON CANCER
     Dosage: SEE IMAGE
     Route: 013
     Dates: start: 20020122, end: 20020205
  2. FLUOROURACIL [Suspect]
     Indication: METASTASES TO LIVER
     Dosage: SEE IMAGE
     Route: 013
     Dates: start: 20020122, end: 20020205
  3. ISOVORIN [Suspect]
     Indication: COLON CANCER
     Dosage: 375 MG;UNKNOWN; INTRAVENOUS
     Route: 042
     Dates: start: 20020122, end: 20020205
  4. ISOVORIN [Suspect]
     Indication: METASTASES TO LIVER
     Dosage: 375 MG;UNKNOWN; INTRAVENOUS
     Route: 042
     Dates: start: 20020122, end: 20020205

REACTIONS (11)
  - ABDOMINAL PAIN [None]
  - ATRIAL FIBRILLATION [None]
  - BONE MARROW DEPRESSION [None]
  - CARDIAC FAILURE [None]
  - CHEILITIS [None]
  - DIARRHOEA [None]
  - GENERAL PHYSICAL HEALTH DETERIORATION [None]
  - HAEMATOCHEZIA [None]
  - MALIGNANT NEOPLASM PROGRESSION [None]
  - STOMATITIS [None]
  - VOMITING [None]
